FAERS Safety Report 14938667 (Version 4)
Quarter: 2018Q3

REPORT INFORMATION
  Report Type: Report from Study
  Country: CA (occurrence: CA)
  Receive Date: 20180525
  Receipt Date: 20180828
  Transmission Date: 20181010
  Serious: Yes (Hospitalization)
  Sender: FDA-Public Use
  Company Number: CA-JNJFOC-20170910451

PATIENT
  Age: 56 Year
  Sex: Female
  Weight: 45.9 kg

DRUGS (4)
  1. IMURAN [Concomitant]
     Active Substance: AZATHIOPRINE
     Route: 048
  2. REMICADE [Suspect]
     Active Substance: INFLIXIMAB
     Indication: CROHN^S DISEASE
     Dosage: 300 MG
     Route: 042
     Dates: start: 20100727
  3. REMICADE [Suspect]
     Active Substance: INFLIXIMAB
     Indication: CROHN^S DISEASE
     Dosage: STRENGTH = 100 MG
     Route: 042
     Dates: start: 20100701
  4. REMICADE [Suspect]
     Active Substance: INFLIXIMAB
     Indication: CROHN^S DISEASE
     Route: 042
     Dates: start: 20170911

REACTIONS (9)
  - Intestinal resection [Recovering/Resolving]
  - Vomiting [Not Recovered/Not Resolved]
  - General physical health deterioration [Recovering/Resolving]
  - Food intolerance [Unknown]
  - Frequent bowel movements [Recovering/Resolving]
  - Abdominal distension [Unknown]
  - Abdominal pain [Recovering/Resolving]
  - Weight decreased [Unknown]
  - Scar [Unknown]

NARRATIVE: CASE EVENT DATE: 20170910
